FAERS Safety Report 21027286 (Version 1)
Quarter: 2022Q2

REPORT INFORMATION
  Report Type: Spontaneous
  Country: US (occurrence: US)
  Receive Date: 20220630
  Receipt Date: 20220630
  Transmission Date: 20220721
  Serious: Yes (Other)
  Sender: FDA-Public Use
  Company Number: US-PFIZER INC-PV202200007361

PATIENT
  Age: 46 Year
  Sex: Female

DRUGS (5)
  1. LABETALOL HYDROCHLORIDE [Suspect]
     Active Substance: LABETALOL HYDROCHLORIDE
     Indication: Pre-eclampsia
     Dosage: 300 MG
     Route: 048
  2. HYDRALAZINE [Concomitant]
     Active Substance: HYDRALAZINE HYDROCHLORIDE
     Indication: Pre-eclampsia
     Dosage: 5 MG
     Route: 042
  3. MAGNESIUM SULFATE [Concomitant]
     Active Substance: MAGNESIUM SULFATE
     Indication: Pre-eclampsia
     Dosage: UNK
     Route: 042
  4. BETAMETHASONE [Concomitant]
     Active Substance: BETAMETHASONE
     Indication: Premature labour
     Dosage: 12 MG
     Route: 030
  5. NPH INSULIN [Concomitant]
     Active Substance: INSULIN BEEF
     Indication: Diabetic ketoacidosis
     Dosage: UNK

REACTIONS (1)
  - Inferior vena cava syndrome [Unknown]
